FAERS Safety Report 7239555-0 (Version None)
Quarter: 2011Q1

REPORT INFORMATION
  Report Type: 
  Country: None (occurrence: None)
  Receive Date: 20110121
  Receipt Date: 20101223
  Transmission Date: 20110831
  Serious: Yes (Hospitalization, Other)
  Sender: FDA-Public Use
  Company Number: ES-AMGEN-US399196

PATIENT
  Sex: Male
  Weight: 85 kg

DRUGS (19)
  1. SIMVASTATIN [Concomitant]
     Dosage: 40 MG, 1X/DAY
     Route: 048
     Dates: start: 20030908, end: 20100222
  2. VALSARTAN [Concomitant]
     Indication: HYPERTENSION
     Dosage: UNK UNK, UNK
     Route: 048
     Dates: start: 20090901, end: 20100222
  3. PLACEBO [Suspect]
     Dosage: 50 MG, QWK
     Route: 058
     Dates: start: 20080731, end: 20100221
  4. PLACEBO [Suspect]
     Dates: start: 20080731, end: 20100221
  5. METHOTREXATE SODIUM [Concomitant]
     Dosage: 20 MG, WEEKLY
     Route: 048
     Dates: start: 20060918, end: 20100221
  6. SIMVASTATIN [Concomitant]
     Indication: HYPERCHOLESTEROLAEMIA
     Dosage: 40 MG, QD
     Route: 048
     Dates: start: 20030908, end: 20100222
  7. BLINDED ETANERCEPT [Suspect]
     Dosage: 50 MG, QWK
     Route: 058
     Dates: start: 20080731, end: 20100221
  8. METHYLPREDNISOLONE ACETATE [Concomitant]
     Indication: RHEUMATOID ARTHRITIS
     Dosage: 4 MG, QD
     Route: 048
     Dates: start: 20030203, end: 20100222
  9. METFORMIN [Concomitant]
     Dosage: UNK
     Route: 065
     Dates: start: 20081024
  10. AMLODIPINE [Concomitant]
     Dosage: 5 MG, 1X/DAY
     Route: 048
     Dates: start: 20090525, end: 20100222
  11. LANSOPRAZOLE [Concomitant]
     Dosage: 30 MG, 1X/DAY
     Route: 048
     Dates: start: 20021007, end: 20100222
  12. BLINDED ETANERCEPT [Suspect]
     Dates: start: 20080731, end: 20100221
  13. AMLODIPINE [Concomitant]
     Indication: HYPERTENSION
     Dosage: 5 MG, QD
     Route: 048
     Dates: start: 20090525, end: 20100222
  14. VALSARTAN [Concomitant]
     Dosage: UNK
     Route: 065
     Dates: start: 20090901, end: 20100222
  15. METFORMIN [Concomitant]
     Indication: DIABETES MELLITUS
     Dosage: UNK UNK, UNK
     Route: 048
     Dates: start: 20081024
  16. METHYLPREDNISOLONE ACETATE [Concomitant]
     Dosage: 4 MG, 1X/DAY
     Route: 048
     Dates: start: 20030203, end: 20100222
  17. METHOTREXATE SODIUM [Concomitant]
     Indication: RHEUMATOID ARTHRITIS
     Dosage: 2 MG, QWK
     Route: 048
     Dates: start: 20060918, end: 20100221
  18. LANSOPRAZOLE [Concomitant]
     Indication: HIATUS HERNIA
     Dosage: 30 MG, QD
     Route: 048
     Dates: start: 20021007, end: 20100222
  19. ETANERCEPT [Suspect]
     Indication: RHEUMATOID ARTHRITIS
     Dosage: UNK, WEEKLY
     Route: 058
     Dates: start: 20080731, end: 20100221

REACTIONS (2)
  - MUSCULAR WEAKNESS [None]
  - CONVULSION [None]
